FAERS Safety Report 4637044-0 (Version None)
Quarter: 2005Q2

REPORT INFORMATION
  Report Type: 
  Country: None (occurrence: None)
  Receive Date: 20050414
  Receipt Date: 20050401
  Transmission Date: 20051028
  Serious: Yes (Hospitalization, Other)
  Sender: FDA-Public Use
  Company Number: 2005056498

PATIENT
  Age: 72 Year
  Sex: Male
  Weight: 90.7194 kg

DRUGS (3)
  1. DETROL LA [Suspect]
     Indication: NOCTURIA
     Dosage: 4 MG (4MG, 1 IN 1 D), ORAL
     Route: 048
     Dates: start: 20030101, end: 20030101
  2. CRESTOR [Concomitant]
  3. GABAPENTIN [Concomitant]

REACTIONS (5)
  - CARPAL TUNNEL SYNDROME [None]
  - DRUG INEFFECTIVE [None]
  - MEDICATION ERROR [None]
  - NEUROPATHY [None]
  - QUADRUPLE VESSEL BYPASS GRAFT [None]
